FAERS Safety Report 21507094 (Version 2)
Quarter: 2022Q4

REPORT INFORMATION
  Report Type: Spontaneous
  Country: JP (occurrence: JP)
  Receive Date: 20221026
  Receipt Date: 20221107
  Transmission Date: 20230113
  Serious: Yes (Other)
  Sender: FDA-Public Use
  Company Number: JP-GILEAD-2022-0602026

PATIENT
  Age: 79 Year
  Sex: Male
  Weight: 79 kg

DRUGS (9)
  1. VEKLURY [Suspect]
     Active Substance: REMDESIVIR
     Indication: COVID-19
     Dosage: 200 MG, QD
     Route: 041
     Dates: start: 20221004, end: 20221004
  2. VEKLURY [Suspect]
     Active Substance: REMDESIVIR
     Dosage: 100 MG, QD
     Route: 041
     Dates: start: 20221005, end: 20221006
  3. ZOSYN [Suspect]
     Active Substance: PIPERACILLIN SODIUM\TAZOBACTAM SODIUM
     Indication: Device related infection
     Dosage: 4.5 G, BID
     Route: 041
     Dates: start: 20220929, end: 20221012
  4. ZOSYN [Suspect]
     Active Substance: PIPERACILLIN SODIUM\TAZOBACTAM SODIUM
     Indication: Pneumonia
     Dosage: 4.5 G, BID
     Route: 041
     Dates: start: 20221018, end: 20221019
  5. VANCOMYCIN HYDROCHLORIDE [Suspect]
     Active Substance: VANCOMYCIN HYDROCHLORIDE
     Indication: Device related infection
     Dosage: 1.5 G, QD
     Route: 041
     Dates: start: 20220929, end: 20220929
  6. VANCOMYCIN HYDROCHLORIDE [Suspect]
     Active Substance: VANCOMYCIN HYDROCHLORIDE
     Indication: Pneumonia
     Dosage: 0.75 G, QD, ONLY DAY OF PERFORM HAEMODIALYSIS
     Route: 041
     Dates: start: 20220930, end: 20221011
  7. VANCOMYCIN HYDROCHLORIDE [Suspect]
     Active Substance: VANCOMYCIN HYDROCHLORIDE
     Indication: Clostridium difficile infection
     Dosage: 0.125 G, QID
     Route: 065
     Dates: start: 20221004, end: 20221013
  8. VANCOMYCIN HYDROCHLORIDE [Suspect]
     Active Substance: VANCOMYCIN HYDROCHLORIDE
     Dosage: 1.5 G, QD
     Route: 041
     Dates: start: 20221018, end: 20221018
  9. CASIRIVIMAB\IMDEVIMAB [Suspect]
     Active Substance: CASIRIVIMAB\IMDEVIMAB
     Indication: COVID-19 prophylaxis
     Dosage: CASIRIVIMAB 600 MG, IMDEVIMAB 600 MG, QD
     Route: 041
     Dates: start: 20221003, end: 20221003

REACTIONS (5)
  - Oedema peripheral [Not Recovered/Not Resolved]
  - Erythema [Not Recovered/Not Resolved]
  - Rash [Not Recovered/Not Resolved]
  - Blister [Not Recovered/Not Resolved]
  - Septic shock [Not Recovered/Not Resolved]

NARRATIVE: CASE EVENT DATE: 20221014
